FAERS Safety Report 7703394-4 (Version None)
Quarter: 2011Q3

REPORT INFORMATION
  Report Type: 
  Country: None (occurrence: None)
  Receive Date: 20110823
  Receipt Date: 20110817
  Transmission Date: 20111222
  Serious: No
  Sender: FDA-Public Use
  Company Number: US-B.I. PHARMACEUTICALS,INC./RIDGEFIELD-2011-BP-20233BP

PATIENT
  Sex: Male

DRUGS (9)
  1. AMANTADINE HCL [Concomitant]
     Indication: PARKINSON'S DISEASE
     Dates: start: 20110201
  2. AMBIEN [Concomitant]
     Indication: INSOMNIA
     Dates: start: 20100301
  3. AZOR [Concomitant]
     Indication: HYPERTENSION
     Dates: start: 20070101
  4. NAPROSYN [Concomitant]
     Indication: OSTEOARTHRITIS
     Dates: start: 20101101
  5. JANUMET [Concomitant]
     Indication: TYPE 2 DIABETES MELLITUS
     Dates: start: 20090201
  6. KLONOPIN [Concomitant]
     Indication: PARKINSON'S DISEASE
     Dates: start: 20110101
  7. MIRAPEX [Suspect]
     Indication: PARKINSON'S DISEASE
     Dosage: 1.5 MG
     Route: 048
     Dates: start: 20101201
  8. KLONOPIN [Concomitant]
     Indication: SLEEP TERROR
  9. ZOLOFT [Concomitant]
     Indication: DEPRESSION
     Dates: start: 20090601

REACTIONS (2)
  - SLEEP TERROR [None]
  - DYSKINESIA [None]
